FAERS Safety Report 5476974-7 (Version None)
Quarter: 2007Q3

REPORT INFORMATION
  Report Type: 
  Country: None (occurrence: None)
  Receive Date: 20070831
  Receipt Date: 20070621
  Transmission Date: 20080115
  Serious: Yes (Other)
  Sender: FDA-Public Use
  Company Number: PHEH2007US09166

PATIENT
  Age: 2 Year
  Sex: Male
  Weight: 12.4 kg

DRUGS (1)
  1. EXJADE [Suspect]
     Indication: THALASSAEMIA
     Dosage: 250 MG, BID, ORAL
     Route: 048
     Dates: start: 20070517, end: 20070608

REACTIONS (3)
  - BLOOD UREA INCREASED [None]
  - DRUG DISPENSING ERROR [None]
  - RENAL FAILURE [None]
